FAERS Safety Report 7038655-8 (Version None)
Quarter: 2010Q4

REPORT INFORMATION
  Report Type: 
  Country: None (occurrence: None)
  Receive Date: 20101011
  Receipt Date: 20101005
  Transmission Date: 20110411
  Serious: Yes (Disabling)
  Sender: FDA-Public Use
  Company Number: US-PFIZER INC-2010115263

PATIENT
  Sex: Female
  Weight: 74.83 kg

DRUGS (5)
  1. SPIRONOLACTONE [Suspect]
     Indication: FLUID RETENTION
     Dosage: 50 MG, 1X/DAY
     Route: 048
     Dates: start: 20100723, end: 20100727
  2. SPIRONOLACTONE [Suspect]
     Dosage: UNK
     Dates: start: 20100730
  3. FUROSEMIDE [Concomitant]
     Indication: DIURETIC THERAPY
     Dosage: UNK
  4. BENICAR [Concomitant]
  5. WARFARIN [Concomitant]

REACTIONS (4)
  - ABDOMINAL PAIN UPPER [None]
  - BALANCE DISORDER [None]
  - DIARRHOEA [None]
  - FATIGUE [None]
